FAERS Safety Report 5979951-2 (Version None)
Quarter: 2008Q4

REPORT INFORMATION
  Report Type: 
  Country: None (occurrence: None)
  Receive Date: 20081205
  Receipt Date: 20081128
  Transmission Date: 20090506
  Serious: Yes (Hospitalization, Other)
  Sender: FDA-Public Use
  Company Number: JP-ASTRAZENECA-2008SE05514

PATIENT
  Age: 79 Year
  Sex: Male

DRUGS (3)
  1. KENZEN 8 MG [Suspect]
     Indication: HYPERTENSION
     Route: 048
     Dates: start: 20081021
  2. INSULATARD [Concomitant]
     Indication: TYPE 1 DIABETES MELLITUS
     Route: 065
  3. MONO-TILDIEM [Concomitant]
     Indication: HYPERTENSION
     Route: 065

REACTIONS (1)
  - HYPOGLYCAEMIC COMA [None]
